FAERS Safety Report 16471116 (Version 24)
Quarter: 2021Q2

REPORT INFORMATION
  Report Type: Spontaneous
  Country: GB (occurrence: GB)
  Receive Date: 20190624
  Receipt Date: 20210409
  Transmission Date: 20210716
  Serious: Yes (Life-Threatening, Hospitalization, Disabling, Other)
  Sender: FDA-Public Use
  Company Number: GB-ASTRAZENECA-2019SE54948

PATIENT
  Age: 22 Year
  Sex: Male

DRUGS (8)
  1. ARIPIPRAZOLE. [Concomitant]
     Active Substance: ARIPIPRAZOLE
     Indication: PRODUCT USED FOR UNKNOWN INDICATION
  2. PROCYCLYDINE [Suspect]
     Active Substance: PROCYCLIDINE
     Indication: TARDIVE DYSKINESIA
     Dosage: 2.5 MG
     Route: 065
  3. METFORMIN [Concomitant]
     Active Substance: METFORMIN HYDROCHLORIDE
     Indication: PRODUCT USED FOR UNKNOWN INDICATION
  4. CLARITHROMYCIN. [Concomitant]
     Active Substance: CLARITHROMYCIN
     Indication: PRODUCT USED FOR UNKNOWN INDICATION
     Route: 042
  5. DIAZEPAM. [Concomitant]
     Active Substance: DIAZEPAM
     Indication: PRODUCT USED FOR UNKNOWN INDICATION
  6. SEROQUEL [Suspect]
     Active Substance: QUETIAPINE FUMARATE
     Indication: PRODUCT USED FOR UNKNOWN INDICATION
     Dosage: 750 MG
     Route: 048
     Dates: start: 2012, end: 2012
  7. INSULIN [Concomitant]
     Active Substance: INSULIN NOS
     Indication: PRODUCT USED FOR UNKNOWN INDICATION
  8. LORAZEPAM. [Concomitant]
     Active Substance: LORAZEPAM

REACTIONS (102)
  - Polyneuropathy [Unknown]
  - Chest injury [Not Recovered/Not Resolved]
  - Metabolic syndrome [Unknown]
  - Hepatic enzyme increased [Unknown]
  - Hepatic steatosis [Unknown]
  - Malaise [Not Recovered/Not Resolved]
  - Contusion [Unknown]
  - Shoulder deformity [Not Recovered/Not Resolved]
  - Anger [Not Recovered/Not Resolved]
  - Facial pain [Not Recovered/Not Resolved]
  - Concussion [Unknown]
  - Injury [Not Recovered/Not Resolved]
  - Psychological trauma [Not Recovered/Not Resolved]
  - Accidental overdose [Unknown]
  - Nervous system disorder [Not Recovered/Not Resolved]
  - Angina pectoris [Unknown]
  - Pneumonia [Unknown]
  - Anxiety [Unknown]
  - Tongue biting [Not Recovered/Not Resolved]
  - Gynaecomastia [Unknown]
  - Feeling hot [Unknown]
  - Hypertension [Not Recovered/Not Resolved]
  - Grip strength decreased [Not Recovered/Not Resolved]
  - Fine motor skill dysfunction [Unknown]
  - Condition aggravated [Unknown]
  - Mononeuropathy [Not Recovered/Not Resolved]
  - Dystonia [Unknown]
  - Head injury [Not Recovered/Not Resolved]
  - Fatigue [Not Recovered/Not Resolved]
  - Dizziness [Not Recovered/Not Resolved]
  - Eructation [Not Recovered/Not Resolved]
  - Dystonic tremor [Not Recovered/Not Resolved]
  - Bedridden [Unknown]
  - Hypopnoea [Unknown]
  - Sleep apnoea syndrome [Unknown]
  - Oxygen saturation decreased [Not Recovered/Not Resolved]
  - Sleep terror [Unknown]
  - Cramp-fasciculation syndrome [Unknown]
  - Nerve injury [Not Recovered/Not Resolved]
  - Loss of personal independence in daily activities [Not Recovered/Not Resolved]
  - Dysphonia [Not Recovered/Not Resolved]
  - Paranoia [Not Recovered/Not Resolved]
  - Dyspnoea [Not Recovered/Not Resolved]
  - Ulnar nerve palsy [Unknown]
  - Serotonin syndrome [Not Recovered/Not Resolved]
  - Allergy to chemicals [Unknown]
  - Psychotic disorder [Unknown]
  - Pain in jaw [Unknown]
  - Pallor [Unknown]
  - Euphoric mood [Unknown]
  - Nerve compression [Not Recovered/Not Resolved]
  - Muscle spasms [Not Recovered/Not Resolved]
  - Stridor [Not Recovered/Not Resolved]
  - Tremor [Not Recovered/Not Resolved]
  - Memory impairment [Unknown]
  - Tooth erosion [Not Recovered/Not Resolved]
  - Headache [Not Recovered/Not Resolved]
  - Musculoskeletal stiffness [Not Recovered/Not Resolved]
  - Hypoaesthesia [Not Recovered/Not Resolved]
  - Myalgia [Not Recovered/Not Resolved]
  - Mood swings [Not Recovered/Not Resolved]
  - Weight increased [Recovered/Resolved]
  - Palpitations [Not Recovered/Not Resolved]
  - Frontal lobe epilepsy [Not Recovered/Not Resolved]
  - Eyelid myokymia [Unknown]
  - Long QT syndrome [Unknown]
  - Brain injury [Unknown]
  - Eye disorder [Not Recovered/Not Resolved]
  - Weight decreased [Unknown]
  - Alopecia [Not Recovered/Not Resolved]
  - Immune system disorder [Not Recovered/Not Resolved]
  - Abdominal pain [Not Recovered/Not Resolved]
  - Movement disorder [Unknown]
  - Muscle twitching [Not Recovered/Not Resolved]
  - Suicidal ideation [Unknown]
  - Confusional state [Unknown]
  - Muscle tightness [Not Recovered/Not Resolved]
  - Delusional disorder, unspecified type [Not Recovered/Not Resolved]
  - Gait disturbance [Not Recovered/Not Resolved]
  - Back pain [Not Recovered/Not Resolved]
  - Blood cholesterol increased [Recovered/Resolved]
  - Blood triglycerides increased [Recovered/Resolved]
  - Dyskinesia [Not Recovered/Not Resolved]
  - Fear of death [Not Recovered/Not Resolved]
  - Pain [Unknown]
  - Circumstance or information capable of leading to medication error [Unknown]
  - Neuroleptic malignant syndrome [Unknown]
  - Hallucination [Not Recovered/Not Resolved]
  - Neuropathy peripheral [Unknown]
  - Toxicity to various agents [Unknown]
  - Tardive dyskinesia [Not Recovered/Not Resolved]
  - Joint stiffness [Unknown]
  - Muscle atrophy [Unknown]
  - Emotional distress [Not Recovered/Not Resolved]
  - White blood cell count decreased [Recovered/Resolved]
  - Muscle contractions involuntary [Not Recovered/Not Resolved]
  - Extrapyramidal disorder [Not Recovered/Not Resolved]
  - Irritability [Not Recovered/Not Resolved]
  - Tachycardia [Not Recovered/Not Resolved]
  - Sensation of foreign body [Unknown]
  - Feeling abnormal [Not Recovered/Not Resolved]
  - Drug hypersensitivity [Not Recovered/Not Resolved]

NARRATIVE: CASE EVENT DATE: 2011
